FAERS Safety Report 19216572 (Version 1)
Quarter: 2021Q2

REPORT INFORMATION
  Report Type: Spontaneous
  Country: US (occurrence: US)
  Receive Date: 20210505
  Receipt Date: 20210505
  Transmission Date: 20210717
  Serious: Yes (Other)
  Sender: FDA-Public Use
  Company Number: US-SA-2021SA146072

PATIENT
  Age: 40 Year
  Sex: Female

DRUGS (14)
  1. KEVZARA [Suspect]
     Active Substance: SARILUMAB
     Indication: RHEUMATOID ARTHRITIS
     Dosage: 150 MG, QOW
     Route: 058
     Dates: start: 2019
  2. PROMETHAZINE HCL [Concomitant]
     Active Substance: PROMETHAZINE HYDROCHLORIDE
  3. ABILIFY [Concomitant]
     Active Substance: ARIPIPRAZOLE
  4. IMITREX [Concomitant]
     Active Substance: SUMATRIPTAN SUCCINATE
  5. TOPAMAX [Concomitant]
     Active Substance: TOPIRAMATE
  6. WELLBUTRIN [Concomitant]
     Active Substance: BUPROPION HYDROCHLORIDE
     Dosage: UNK, Q12H
  7. KEVZARA [Suspect]
     Active Substance: SARILUMAB
     Dosage: 150 MG, QOW
     Route: 058
  8. KEVZARA [Suspect]
     Active Substance: SARILUMAB
     Dosage: 150 MG, Q3W
     Route: 058
  9. IRBESARTAN. [Concomitant]
     Active Substance: IRBESARTAN
  10. GABAPENTIN. [Concomitant]
     Active Substance: GABAPENTIN
  11. ATORVASTATIN [Concomitant]
     Active Substance: ATORVASTATIN
  12. PROLIA [Concomitant]
     Active Substance: DENOSUMAB
  13. ZOFRAN [Concomitant]
     Active Substance: ONDANSETRON HYDROCHLORIDE
  14. LYRICA [Concomitant]
     Active Substance: PREGABALIN

REACTIONS (9)
  - Cough [Unknown]
  - Pain in extremity [Unknown]
  - Sinusitis [Unknown]
  - Product use issue [Unknown]
  - Rheumatoid arthritis [Unknown]
  - Respiratory tract infection [Unknown]
  - Oropharyngeal pain [Unknown]
  - Off label use [Unknown]
  - Arthralgia [Unknown]

NARRATIVE: CASE EVENT DATE: 2019
